FAERS Safety Report 9101395 (Version 1)
Quarter: 2013Q1

REPORT INFORMATION
  Report Type: Spontaneous
  Country: US (occurrence: US)
  Receive Date: 20130218
  Receipt Date: 20130218
  Transmission Date: 20140127
  Serious: No
  Sender: FDA-Public Use
  Company Number: US-TEVA-385214USA

PATIENT
  Age: 66 Year
  Sex: Female
  Weight: 78.09 kg

DRUGS (2)
  1. PROAIR HFA [Suspect]
     Indication: WHEEZING
     Dosage: PRN
     Route: 055
     Dates: start: 20130202
  2. AMOXICILLIN [Concomitant]
     Indication: INFECTION

REACTIONS (2)
  - Wheezing [Not Recovered/Not Resolved]
  - Drug ineffective [Unknown]
